FAERS Safety Report 16071943 (Version 1)
Quarter: 2019Q1

REPORT INFORMATION
  Report Type: Report from Study
  Country: BR (occurrence: BR)
  Receive Date: 20190314
  Receipt Date: 20190314
  Transmission Date: 20190418
  Serious: Yes (Other)
  Sender: FDA-Public Use
  Company Number: BR-JNJFOC-20190310419

PATIENT
  Age: 33 Year
  Sex: Female

DRUGS (4)
  1. ISONIAZID. [Concomitant]
     Active Substance: ISONIAZID
     Route: 065
  2. INFLIXIMAB, RECOMBINANT [Suspect]
     Active Substance: INFLIXIMAB
     Indication: RHEUMATOID ARTHRITIS
     Route: 042
     Dates: start: 20181024, end: 20190208
  3. INFLIXIMAB, RECOMBINANT [Suspect]
     Active Substance: INFLIXIMAB
     Indication: COLITIS
     Route: 042
     Dates: start: 20181024, end: 20190208
  4. MESALAZINE [Concomitant]
     Active Substance: MESALAMINE
     Route: 065

REACTIONS (9)
  - Pruritus [Unknown]
  - Hypertension [Recovering/Resolving]
  - Fatigue [Unknown]
  - Tachycardia [Recovering/Resolving]
  - Nausea [Unknown]
  - Infusion related reaction [Recovering/Resolving]
  - Dyspnoea [Recovering/Resolving]
  - Headache [Unknown]
  - Cardiac arrest [Recovering/Resolving]

NARRATIVE: CASE EVENT DATE: 20190208
